FAERS Safety Report 18365304 (Version 1)
Quarter: 2020Q4

REPORT INFORMATION
  Report Type: Spontaneous
  Country: US (occurrence: US)
  Receive Date: 20201009
  Receipt Date: 20201009
  Transmission Date: 20210114
  Serious: Yes (Hospitalization)
  Sender: FDA-Public Use
  Company Number: None

PATIENT
  Sex: Male

DRUGS (1)
  1. TOBRAMYCIN. [Suspect]
     Active Substance: TOBRAMYCIN
     Indication: MUCOPOLYSACCHARIDOSIS I
     Dosage: ?          OTHER ROUTE:INHALE VIA NEBULIZER?
     Route: 055
     Dates: start: 20200417

REACTIONS (3)
  - Pseudomonas infection [None]
  - Diarrhoea [None]
  - Bacteraemia [None]
